FAERS Safety Report 11155541 (Version 1)
Quarter: 2015Q2

REPORT INFORMATION
  Report Type: Spontaneous
  Country: GR (occurrence: GR)
  Receive Date: 20150602
  Receipt Date: 20150602
  Transmission Date: 20150821
  Serious: Yes (Other)
  Sender: FDA-Public Use
  Company Number: GR-PFIZER INC-2015182135

PATIENT
  Age: 50 Year
  Sex: Female

DRUGS (1)
  1. DALACIN C [Suspect]
     Active Substance: CLINDAMYCIN PHOSPHATE
     Indication: PERITONSILLAR ABSCESS
     Dosage: 300 MG, 2X/DAY (EVERY 12 HOURS)
     Route: 048
     Dates: start: 201505, end: 20150524

REACTIONS (2)
  - Haemorrhage [Recovering/Resolving]
  - Haemorrhoids [Recovering/Resolving]

NARRATIVE: CASE EVENT DATE: 201505
